FAERS Safety Report 5988277-2 (Version None)
Quarter: 2008Q4

REPORT INFORMATION
  Report Type: 
  Country: None (occurrence: None)
  Receive Date: 20081210
  Receipt Date: 20081202
  Transmission Date: 20090506
  Serious: Yes (Hospitalization, Disabling)
  Sender: FDA-Public Use
  Company Number: CH-PFIZER INC-2008101224

PATIENT

DRUGS (11)
  1. VFEND [Suspect]
     Indication: ASPERGILLOSIS
     Route: 048
     Dates: start: 20080402, end: 20080409
  2. NEXIUM [Suspect]
     Route: 048
     Dates: start: 20080402, end: 20080409
  3. ALENDRONATE SODIUM [Concomitant]
     Dates: end: 20080409
  4. CHONDROITIN SULFATE SODIUM [Concomitant]
     Dates: end: 20080409
  5. ELTROXIN [Concomitant]
  6. CALCIMAGON-D3 [Concomitant]
  7. TORSEMIDE [Concomitant]
     Dates: start: 20080402, end: 20080409
  8. ALDACTONE [Concomitant]
     Dates: start: 20080407, end: 20080409
  9. IBUPROFEN TABLETS [Concomitant]
     Dates: start: 20080407, end: 20080409
  10. CEFTRIAXONE [Concomitant]
     Dates: start: 20080408, end: 20080409
  11. COTRIM [Concomitant]
     Dates: start: 20080409, end: 20080409

REACTIONS (3)
  - GUILLAIN-BARRE SYNDROME [None]
  - RENAL FAILURE ACUTE [None]
  - RHABDOMYOLYSIS [None]
